FAERS Safety Report 6962766-6 (Version None)
Quarter: 2010Q3

REPORT INFORMATION
  Report Type: 
  Country: None (occurrence: None)
  Receive Date: 20100902
  Receipt Date: 20100825
  Transmission Date: 20110219
  Serious: Yes (Hospitalization)
  Sender: FDA-Public Use
  Company Number: DE-BRISTOL-MYERS SQUIBB COMPANY-15256381

PATIENT
  Age: 30 Year
  Sex: Female

DRUGS (3)
  1. REYATAZ [Suspect]
     Dosage: 1 DF:300/
     Dates: start: 20071001
  2. TRUVADA [Suspect]
     Dates: start: 20071001
  3. NORVIR [Suspect]
     Dosage: ALSO MAY-2004 UNTIL OCT-2006.
     Dates: start: 20071001

REACTIONS (4)
  - PREMATURE LABOUR [None]
  - PREMATURE RUPTURE OF MEMBRANES [None]
  - TWIN PREGNANCY [None]
  - URINARY TRACT INFECTION [None]
